FAERS Safety Report 6876906-0 (Version None)
Quarter: 2010Q3

REPORT INFORMATION
  Report Type: 
  Country: None (occurrence: None)
  Receive Date: 20100727
  Receipt Date: 20100720
  Transmission Date: 20110219
  Serious: Yes (Death)
  Sender: FDA-Public Use
  Company Number: US-GILEAD-2010-0030522

PATIENT
  Sex: Female
  Weight: 51.302 kg

DRUGS (14)
  1. LETAIRIS [Suspect]
     Indication: PULMONARY ARTERIAL HYPERTENSION
     Route: 048
     Dates: start: 20090901, end: 20100601
  2. FOLIC ACID [Concomitant]
  3. SULFASALAZINE [Concomitant]
  4. L-CARNITINE [Concomitant]
  5. COQ10 [Concomitant]
  6. CREATINE [Concomitant]
  7. DAYPRO [Concomitant]
  8. LISINOPRIL [Concomitant]
  9. CITALOPRAM HYDROBROMIDE [Concomitant]
  10. VITAMIN D [Concomitant]
  11. ARAVA [Concomitant]
  12. PRILOSEC [Concomitant]
  13. VERAPAMIL [Concomitant]
  14. LEXAPRO [Concomitant]

REACTIONS (1)
  - DEATH [None]
